FAERS Safety Report 7539412-6 (Version None)
Quarter: 2011Q2

REPORT INFORMATION
  Report Type: 
  Country: None (occurrence: None)
  Receive Date: 20110610
  Receipt Date: 20110606
  Transmission Date: 20111010
  Serious: Yes (Other)
  Sender: FDA-Public Use
  Company Number: US-TEVA-284830USA

PATIENT
  Age: 68 Year
  Sex: Female

DRUGS (9)
  1. SULFAMETHOXAZOLE AND TRIMETHOPRIM [Suspect]
     Indication: URINARY TRACT INFECTION
  2. SOLIRIS [Concomitant]
     Dosage: 64.2857 MILLIGRAM;
     Route: 042
     Dates: start: 20100312
  3. WARFARIN SODIUM [Concomitant]
  4. SOLIRIS [Concomitant]
     Indication: PAROXYSMAL NOCTURNAL HAEMOGLOBINURIA
     Dosage: 85.7143 MILLIGRAM;
     Route: 042
     Dates: start: 20100211
  5. PREDNISONE [Concomitant]
  6. ISOSORBIDE DINITRATE [Concomitant]
  7. AMITRIPTYLINE HCL [Concomitant]
  8. SIMVASTATIN [Concomitant]
  9. GABAPENTIN [Concomitant]

REACTIONS (2)
  - DRUG INTERACTION [None]
  - TRANSIENT ISCHAEMIC ATTACK [None]
